FAERS Safety Report 20625552 (Version 1)
Quarter: 2022Q1

REPORT INFORMATION
  Report Type: Spontaneous
  Country: US (occurrence: None)
  Receive Date: 20220323
  Receipt Date: 20220323
  Transmission Date: 20220423
  Serious: No
  Sender: FDA-Public Use
  Company Number: US-ROCHE-2950187

PATIENT
  Sex: Female
  Weight: 63.560 kg

DRUGS (1)
  1. ERIVEDGE [Suspect]
     Active Substance: VISMODEGIB
     Indication: Brain neoplasm malignant
     Route: 048
     Dates: start: 20201020

REACTIONS (2)
  - Off label use [Unknown]
  - No adverse event [Unknown]
